FAERS Safety Report 9919339 (Version 1)
Quarter: 2014Q1

REPORT INFORMATION
  Report Type: Spontaneous
  Country: AR (occurrence: AR)
  Receive Date: 20140224
  Receipt Date: 20140224
  Transmission Date: 20141002
  Serious: Yes (Hospitalization)
  Sender: FDA-Public Use
  Company Number: AR-PFIZER INC-2014050866

PATIENT
  Age: 78 Year
  Sex: Female

DRUGS (1)
  1. SUTENT [Suspect]
     Indication: METASTATIC RENAL CELL CARCINOMA
     Dosage: 50 MG, 1X/DAY (4 WEEKS ON, 2 WEEKS OFF SCHEME)
     Dates: start: 20131104

REACTIONS (3)
  - Gastritis [Recovered/Resolved]
  - Dehydration [Recovered/Resolved]
  - Eating disorder [Recovered/Resolved]
